FAERS Safety Report 19219117 (Version 1)
Quarter: 2021Q2

REPORT INFORMATION
  Report Type: Spontaneous
  Country: US (occurrence: US)
  Receive Date: 20210506
  Receipt Date: 20210506
  Transmission Date: 20210717
  Serious: No
  Sender: FDA-Public Use
  Company Number: US-ROCHE-2600178

PATIENT
  Sex: Male

DRUGS (1)
  1. ESBRIET [Suspect]
     Active Substance: PIRFENIDONE
     Indication: IDIOPATHIC PULMONARY FIBROSIS
     Dosage: PILLS
     Route: 048
     Dates: start: 20191115

REACTIONS (4)
  - Fatigue [Recovered/Resolved]
  - Somnolence [Unknown]
  - Abdominal discomfort [Recovered/Resolved]
  - Depression [Recovered/Resolved]
